FAERS Safety Report 17409441 (Version 1)
Quarter: 2020Q1

REPORT INFORMATION
  Report Type: Spontaneous
  Country: ES (occurrence: ES)
  Receive Date: 20200212
  Receipt Date: 20200212
  Transmission Date: 20200409
  Serious: Yes (Other)
  Sender: FDA-Public Use
  Company Number: ES-TEVA-2020-ES-1184538

PATIENT
  Age: 46 Year
  Sex: Female

DRUGS (5)
  1. CIPROFLOXACINO 500 MG COMPRIMIDO [Suspect]
     Active Substance: CIPROFLOXACIN
     Indication: SKIN INFECTION
     Dosage: 500 MG 12 HOURS
     Route: 048
     Dates: start: 20200121, end: 20200124
  2. ZOLPIDEM 10 MG 30 COMPRIMIDOS [Concomitant]
     Indication: ANXIETY
     Dosage: 5 MG 24 HOURS
     Route: 048
     Dates: start: 20190531
  3. RAMIPRIL 2,5 MG 28 COMPRIMIDOS [Concomitant]
     Indication: HYPERTENSION
     Dosage: 2.5 MG 1 DAYS
     Route: 048
     Dates: start: 20160627
  4. LEVETIRACETAM 100 MG/ML SOLUCI?N/SUSPENSI?N ORAL 150 ML 1 FRASCO (JERI [Concomitant]
     Indication: EPILEPSY
     Dosage: 750 MG 12 HOURS
     Route: 048
     Dates: start: 20190823
  5. PARACETAMOL 1.000 MG SOLUCI?N/SUSPENSI?N ORAL EFERVESCENTE 10 SOBRES ( [Concomitant]
     Indication: PRODUCT USED FOR UNKNOWN INDICATION
     Dosage: 1 GRAM 8 HOURS
     Route: 048
     Dates: start: 20200120

REACTIONS (1)
  - Toxic skin eruption [Recovering/Resolving]

NARRATIVE: CASE EVENT DATE: 20200121
